FAERS Safety Report 5126510-X (Version None)
Quarter: 2006Q4

REPORT INFORMATION
  Report Type: 
  Country: None (occurrence: None)
  Receive Date: 20061010
  Receipt Date: 20060928
  Transmission Date: 20070319
  Serious: Yes (Other)
  Sender: FDA-Public Use
  Company Number: 2006117827

PATIENT
  Sex: Male

DRUGS (4)
  1. GLYBURIDE [Suspect]
  2. ENALAPRIL MALEATE [Suspect]
  3. TOPROL-XL [Suspect]
  4. ACTOS [Suspect]

REACTIONS (3)
  - CEREBROVASCULAR ACCIDENT [None]
  - DIABETES MELLITUS NON-INSULIN-DEPENDENT [None]
  - HYPERTENSION [None]
